FAERS Safety Report 20947505 (Version 1)
Quarter: 2022Q2

REPORT INFORMATION
  Report Type: Spontaneous
  Country: US (occurrence: US)
  Receive Date: 20220610
  Receipt Date: 20220610
  Transmission Date: 20220720
  Serious: No
  Sender: FDA-Public Use
  Company Number: US-RIGEL PHARMACEUTICALS, INC.-2021FOS000892

PATIENT
  Sex: Female

DRUGS (1)
  1. TAVALISSE [Suspect]
     Active Substance: FOSTAMATINIB
     Indication: Thrombocytopenia
     Dosage: 100 MG, QOD (MONDAY, WEDNESDAY, FRIDAY AND ONE DAY ON WEEKEND)
     Route: 048

REACTIONS (3)
  - Intentional product misuse [Unknown]
  - Off label use [Unknown]
  - Diarrhoea [Unknown]
